FAERS Safety Report 13055818 (Version 1)
Quarter: 2016Q4

REPORT INFORMATION
  Report Type: Spontaneous
  Country: MX (occurrence: MX)
  Receive Date: 20161222
  Receipt Date: 20161222
  Transmission Date: 20170207
  Serious: Yes (Hospitalization)
  Sender: FDA-Public Use
  Company Number: MX-FERRINGPH-2016FE06803

PATIENT

DRUGS (2)
  1. PICOPREP [Suspect]
     Active Substance: CITRIC ACID MONOHYDRATE\MAGNESIUM OXIDE\SODIUM PICOSULFATE
     Indication: BOWEL PREPARATION
     Dosage: 1 SACHET
     Route: 048
     Dates: start: 20161205, end: 20161205
  2. PICOPREP [Suspect]
     Active Substance: CITRIC ACID MONOHYDRATE\MAGNESIUM OXIDE\SODIUM PICOSULFATE
     Dosage: 1 SACHET
     Route: 048
     Dates: start: 20161205, end: 20161205

REACTIONS (5)
  - Dizziness [Recovered/Resolved]
  - Treatment noncompliance [Recovered/Resolved]
  - Hypoaesthesia [Recovered/Resolved]
  - Vomiting [Recovered/Resolved]
  - Diarrhoea [Recovered/Resolved]

NARRATIVE: CASE EVENT DATE: 20161205
